FAERS Safety Report 9066829 (Version 1)
Quarter: 2013Q1

REPORT INFORMATION
  Report Type: Spontaneous
  Country: NO (occurrence: NO)
  Receive Date: 20130214
  Receipt Date: 20130214
  Transmission Date: 20140127
  Serious: Yes (Disabling)
  Sender: FDA-Public Use
  Company Number: NO-GLAXOSMITHKLINE-B0866860A

PATIENT
  Sex: Female

DRUGS (4)
  1. NEOTIGASON [Suspect]
     Indication: PSORIASIS
     Dosage: 20MG PER DAY
     Route: 048
     Dates: start: 20120907, end: 20121101
  2. NEXIUM [Concomitant]
     Route: 065
  3. NIFEREX [Concomitant]
     Route: 065
  4. ATACAND [Concomitant]
     Route: 065

REACTIONS (1)
  - Colitis [Recovered/Resolved]
